FAERS Safety Report 5415789-2 (Version None)
Quarter: 2007Q3

REPORT INFORMATION
  Report Type: 
  Country: None (occurrence: None)
  Receive Date: 20070731
  Receipt Date: 20070601
  Transmission Date: 20080115
  Serious: No
  Sender: FDA-Public Use
  Company Number: US200706000632

PATIENT
  Age: 60 Year
  Sex: Male
  Weight: 138.8 kg

DRUGS (11)
  1. BYETTA [Suspect]
     Indication: TYPE 2 DIABETES MELLITUS
     Dosage: 10 UG, 2/D, SUBCUTANEOUS; 5 UG, 2/D, SUBCUTANEOUS
     Route: 058
     Dates: start: 20070101, end: 20070101
  2. EXENATIDE PEN, DISPOSABLE DEVICE (EXENATIDE PEN)) PEN, DISPOSABLE [Concomitant]
  3. ALLOPURINOL [Concomitant]
  4. DOXAZOSIN (DOXAZOSIN) [Concomitant]
  5. MECLIZINE [Concomitant]
  6. SYNTHROID [Concomitant]
  7. CELEBREX [Concomitant]
  8. MOBIC [Concomitant]
  9. K-DUR 10 [Concomitant]
  10. HYDROCHLOROTHIAZIDE [Concomitant]
  11. CYCLOBENZAPRINE [Concomitant]

REACTIONS (5)
  - CHEST PAIN [None]
  - DIZZINESS [None]
  - FATIGUE [None]
  - MUSCULAR WEAKNESS [None]
  - NAUSEA [None]
